FAERS Safety Report 19926391 (Version 5)
Quarter: 2022Q3

REPORT INFORMATION
  Report Type: Report from Study
  Country: ES (occurrence: ES)
  Receive Date: 20211006
  Receipt Date: 20220929
  Transmission Date: 20221027
  Serious: Yes (Hospitalization, Other)
  Sender: FDA-Public Use
  Company Number: ES-BRISTOL-MYERS SQUIBB COMPANY-BMS-2021-099267

PATIENT
  Age: 84 Year
  Sex: Male
  Weight: 98 kg

DRUGS (10)
  1. NIVOLUMAB [Suspect]
     Active Substance: NIVOLUMAB
     Indication: Bladder cancer
     Dosage: MOST RECENT DOSE ON 22-SEP-2021
     Route: 042
     Dates: start: 20210728
  2. CISPLATIN [Suspect]
     Active Substance: CISPLATIN
     Indication: Bladder cancer
     Dosage: MOST RECENT DOSE ON 22-SEP-2021
     Route: 065
     Dates: start: 20210728
  3. CISPLATIN [Suspect]
     Active Substance: CISPLATIN
     Route: 065
     Dates: start: 20210922, end: 20210922
  4. GEMCITABINE HYDROCHLORIDE [Suspect]
     Active Substance: GEMCITABINE HYDROCHLORIDE
     Indication: Bladder cancer
     Dosage: MOST RECENT DOSE ON 22-SEP-2021
     Route: 065
     Dates: start: 20210728
  5. GEMCITABINE HYDROCHLORIDE [Suspect]
     Active Substance: GEMCITABINE HYDROCHLORIDE
     Route: 065
     Dates: start: 20210922, end: 20210922
  6. LOSARTAN [Concomitant]
     Active Substance: LOSARTAN
     Indication: Product used for unknown indication
     Route: 048
     Dates: start: 20210823
  7. FAMOTIDINA [Concomitant]
     Indication: Dyspepsia
     Route: 048
     Dates: start: 20210805
  8. LEVOSULPIRIDE [Concomitant]
     Active Substance: LEVOSULPIRIDE
     Indication: Dyspepsia
     Dosage: 1 DOSAGE FORM = 1 UNIT NOS, ONGOING
     Route: 048
     Dates: start: 20210805
  9. CEFIXIME [Concomitant]
     Active Substance: CEFIXIME
     Indication: Urinary tract infection
     Dosage: 400 MILLIGRAM
     Route: 048
     Dates: start: 20210912, end: 20210921
  10. DUTASTERIDE\TAMSULOSIN [Concomitant]
     Active Substance: DUTASTERIDE\TAMSULOSIN
     Indication: Product used for unknown indication
     Route: 048

REACTIONS (1)
  - Pulmonary embolism [Recovering/Resolving]

NARRATIVE: CASE EVENT DATE: 20210927
